FAERS Safety Report 10189951 (Version 1)
Quarter: 2014Q2

REPORT INFORMATION
  Report Type: Spontaneous
  Country: BE (occurrence: BE)
  Receive Date: 20140522
  Receipt Date: 20140522
  Transmission Date: 20141212
  Serious: Yes (Life-Threatening, Hospitalization)
  Sender: FDA-Public Use
  Company Number: BE-B.I. PHARMACEUTICALS,INC./RIDGEFIELD-2014-BI-22339BL

PATIENT
  Age: 72 Year
  Sex: Female
  Weight: 65 kg

DRUGS (11)
  1. PRADAXA [Suspect]
     Indication: ATRIAL FIBRILLATION
     Dosage: 300 MG
     Route: 065
  2. ISOTEN MINOR [Concomitant]
     Indication: HYPERTENSION
     Dosage: 2.5 MG
     Route: 048
  3. ZESTORETIC [Concomitant]
     Indication: HYPERTENSION
     Dosage: DOSE PER APPLICATION : 20/12.5
     Route: 048
  4. ZANTAC [Concomitant]
     Indication: GASTROOESOPHAGEAL REFLUX DISEASE
     Dosage: 150 MG
     Route: 048
     Dates: start: 2012
  5. HALDOL [Concomitant]
     Indication: HALLUCINATION
     Dosage: 15 MG
     Route: 048
     Dates: start: 20130802
  6. HALDOL [Concomitant]
     Indication: PSYCHOTIC DISORDER
  7. SEROQUEL XR [Concomitant]
     Indication: HALLUCINATION
     Dosage: 200 MG
     Route: 048
  8. SEROQUEL XR [Concomitant]
     Indication: PSYCHOTIC DISORDER
  9. GARDENAL [Concomitant]
     Indication: EPILEPSY
     Dosage: 100 MG
     Route: 048
  10. D-CURE [Concomitant]
     Indication: OSTEOPOROSIS
     Dosage: 833.3333 U
     Route: 048
  11. APOCARD RETARD [Concomitant]
     Indication: ATRIAL FIBRILLATION
     Dosage: 150 MG
     Route: 048

REACTIONS (1)
  - Intestinal ischaemia [Unknown]
